FAERS Safety Report 25439418 (Version 1)
Quarter: 2025Q2

REPORT INFORMATION
  Report Type: Spontaneous
  Country: JP (occurrence: JP)
  Receive Date: 20250616
  Receipt Date: 20250616
  Transmission Date: 20250717
  Serious: Yes (Hospitalization)
  Sender: MERCK SHARP & DOHME LLC
  Company Number: JP-BAYER-2025A072425

PATIENT
  Age: 94 Year
  Sex: Female

DRUGS (1)
  1. VERQUVO [Suspect]
     Active Substance: VERICIGUAT
     Dosage: 2.5 MG, QD
     Dates: end: 20250529

REACTIONS (2)
  - Fracture [Unknown]
  - Blood pressure decreased [Unknown]
